FAERS Safety Report 22378865 (Version 1)
Quarter: 2023Q2

REPORT INFORMATION
  Report Type: Spontaneous
  Country: CA (occurrence: CA)
  Receive Date: 20230529
  Receipt Date: 20230529
  Transmission Date: 20230721
  Serious: Yes (Other)
  Sender: FDA-Public Use
  Company Number: CA-ORGANON-O2208CAN002093

PATIENT
  Age: 71 Year
  Sex: Male

DRUGS (12)
  1. DIPROSONE [Suspect]
     Active Substance: BETAMETHASONE DIPROPIONATE
     Indication: Trichophytosis
     Dosage: UNK
     Route: 065
  2. DIPROSONE [Suspect]
     Active Substance: BETAMETHASONE DIPROPIONATE
     Indication: Fungal infection
     Dosage: UNK
     Route: 061
  3. CLOBETASOL PROPIONATE [Suspect]
     Active Substance: CLOBETASOL PROPIONATE
     Indication: Trichophytosis
     Dosage: UNK
     Route: 061
  4. CLOBETASOL PROPIONATE [Suspect]
     Active Substance: CLOBETASOL PROPIONATE
     Indication: Fungal infection
     Dosage: UNK
     Route: 065
  5. TERBINAFINE [Suspect]
     Active Substance: TERBINAFINE
     Indication: Trichophytosis
     Dosage: 250 MILLIGRAM, DOSAGE FORM: NOT SPECIFIED
     Route: 048
  6. TERBINAFINE [Suspect]
     Active Substance: TERBINAFINE
     Indication: Fungal infection
     Dosage: UNK
     Route: 065
  7. CLOBETASOL [Concomitant]
     Active Substance: CLOBETASOL
     Indication: Trichophytosis
     Dosage: UNK
     Route: 065
  8. TERBINAFINE [Concomitant]
     Active Substance: TERBINAFINE
     Indication: Trichophytosis
     Dosage: 250 MILLIGRAM ORAL (PO) FOR ONE WEEK^ DOSAGE FORM: NOT SPECIFIED
     Route: 048
  9. TERBINAFINE [Concomitant]
     Active Substance: TERBINAFINE
     Dosage: UNK
     Route: 065
  10. FLUCONAZOLE [Concomitant]
     Active Substance: FLUCONAZOLE
     Indication: Trichophytosis
     Dosage: 150 MG ORAL DAILY X 2 WEEKS; DOSAGE FORM: NOT SPECIFIED
     Route: 048
  11. FLUCONAZOLE [Concomitant]
     Active Substance: FLUCONAZOLE
     Indication: Fungal infection
     Dosage: THEN 150 MG PO WEEKLY X 2 WEEK
     Route: 048
  12. FLUCONAZOLE [Concomitant]
     Active Substance: FLUCONAZOLE
     Dosage: UNK
     Route: 065

REACTIONS (4)
  - Product use in unapproved indication [Unknown]
  - Drug ineffective [Unknown]
  - Fungal infection [Unknown]
  - Condition aggravated [Unknown]
